FAERS Safety Report 14671034 (Version 6)
Quarter: 2021Q1

REPORT INFORMATION
  Report Type: Spontaneous
  Country: US (occurrence: US)
  Receive Date: 20180322
  Receipt Date: 20210305
  Transmission Date: 20210419
  Serious: No
  Sender: FDA-Public Use
  Company Number: US-BIOGEN-2018BI00544982

PATIENT
  Age: 58 Year
  Sex: Male

DRUGS (1)
  1. TYSABRI [Suspect]
     Active Substance: NATALIZUMAB
     Indication: MULTIPLE SCLEROSIS
     Route: 050
     Dates: start: 20130523, end: 20191105

REACTIONS (15)
  - Multiple sclerosis relapse [Unknown]
  - Loss of consciousness [Unknown]
  - Bipolar disorder [Unknown]
  - Fall [Recovered/Resolved]
  - Disorientation [Unknown]
  - Anxiety [Unknown]
  - Fatigue [Recovered/Resolved]
  - Drug ineffective [Unknown]
  - Spinal disorder [Unknown]
  - Thinking abnormal [Unknown]
  - Mobility decreased [Unknown]
  - Multiple sclerosis [Unknown]
  - Decreased immune responsiveness [Unknown]
  - Discomfort [Unknown]
  - Muscular weakness [Unknown]

NARRATIVE: CASE EVENT DATE: 201809
